FAERS Safety Report 20280200 (Version 1)
Quarter: 2022Q1

REPORT INFORMATION
  Report Type: Report from Study
  Country: US (occurrence: US)
  Receive Date: 20220103
  Receipt Date: 20220103
  Transmission Date: 20220424
  Serious: Yes (Other)
  Sender: FDA-Public Use
  Company Number: US-MYLANLABS-2021M1096104

PATIENT
  Sex: Female
  Weight: 113.4 kg

DRUGS (1)
  1. GLATIRAMER ACETATE [Suspect]
     Active Substance: GLATIRAMER ACETATE
     Indication: Relapsing-remitting multiple sclerosis
     Dosage: 40 MILLIGRAM, 3XW
     Route: 058

REACTIONS (12)
  - Hemiparesis [Unknown]
  - Multiple sclerosis relapse [Unknown]
  - Dysuria [Unknown]
  - Burning sensation [Unknown]
  - Faeces discoloured [Unknown]
  - Swelling face [Unknown]
  - Abdominal discomfort [Unknown]
  - Dysphagia [Unknown]
  - Back pain [Unknown]
  - Dizziness [Unknown]
  - Fatigue [Unknown]
  - Loss of personal independence in daily activities [Unknown]
